FAERS Safety Report 10703458 (Version 1)
Quarter: 2015Q1

REPORT INFORMATION
  Report Type: Spontaneous
  Country: CO (occurrence: CO)
  Receive Date: 20150112
  Receipt Date: 20150112
  Transmission Date: 20150721
  Serious: Yes (Other)
  Sender: FDA-Public Use
  Company Number: CO-AMGEN-COLSP2015001225

PATIENT
  Sex: Male

DRUGS (1)
  1. ENBREL [Suspect]
     Active Substance: ETANERCEPT
     Indication: RHEUMATOID ARTHRITIS
     Dosage: 50 MG, WEEKLY
     Route: 058
     Dates: start: 201106, end: 201409

REACTIONS (2)
  - Impaired healing [Not Recovered/Not Resolved]
  - Foot deformity [Not Recovered/Not Resolved]
